FAERS Safety Report 8782024 (Version 3)
Quarter: 2014Q2

REPORT INFORMATION
  Report Type: Spontaneous
  Country: US (occurrence: US)
  Receive Date: 20120913
  Receipt Date: 20140429
  Transmission Date: 20141212
  Serious: Yes (Hospitalization, Other)
  Sender: FDA-Public Use
  Company Number: US-BAYER-2012-094383

PATIENT
  Age: 19 Year
  Sex: Female
  Weight: 79.37 kg

DRUGS (6)
  1. YAZ [Suspect]
     Indication: CONTRACEPTION
     Dosage: UNK
     Dates: start: 200611, end: 201110
  2. YAZ [Suspect]
     Indication: ACNE
  3. NAPROXEN [Concomitant]
     Indication: LIGAMENT SPRAIN
     Dosage: 500 MG, UNK
     Dates: start: 20090415
  4. LORTAB [Concomitant]
     Indication: LIGAMENT SPRAIN
     Dosage: 5 MG, UNK
     Dates: start: 20090415
  5. TRIAMCINOLONE [TRIAMCINOLONE] [Concomitant]
     Indication: DERMATITIS
     Dosage: 0.5 %, APPLY BID
     Dates: start: 20090511
  6. Z-PAK [Concomitant]
     Indication: UPPER RESPIRATORY TRACT INFECTION
     Dosage: UNK
     Dates: start: 20090513

REACTIONS (10)
  - Gallbladder disorder [None]
  - Cholecystitis [None]
  - Injury [None]
  - Abdominal pain [None]
  - Back pain [None]
  - General physical health deterioration [None]
  - Emotional distress [None]
  - Anxiety [None]
  - Pain [None]
  - Anhedonia [None]
